FAERS Safety Report 11481811 (Version 2)
Quarter: 2015Q3

REPORT INFORMATION
  Report Type: Spontaneous
  Country: US (occurrence: US)
  Receive Date: 20150903
  Receipt Date: 20150903
  Transmission Date: 20151125
  Serious: No
  Sender: FDA-Public Use
  Company Number: US-ELI_LILLY_AND_COMPANY-US201201005607

PATIENT
  Age: 63 Year
  Sex: Female
  Weight: 92.97 kg

DRUGS (11)
  1. CYMBALTA [Suspect]
     Active Substance: DULOXETINE HYDROCHLORIDE
     Indication: FIBROMYALGIA
     Dosage: 60 MG, QD
     Route: 048
     Dates: start: 201111
  2. GLUCOPHAGE [Concomitant]
     Active Substance: METFORMIN HYDROCHLORIDE
     Dosage: UNK, BID
  3. TOPROL XL [Concomitant]
     Active Substance: METOPROLOL SUCCINATE
  4. BABY ASPIRIN [Concomitant]
     Active Substance: ASPIRIN
     Dosage: 81 MG, QD
  5. NOVOLOG [Concomitant]
     Active Substance: INSULIN ASPART
     Dosage: UNK, BID
  6. VITAMIN D [Concomitant]
     Active Substance: CHOLECALCIFEROL
  7. ZOLPIDEM [Concomitant]
     Active Substance: ZOLPIDEM\ZOLPIDEM TARTRATE
  8. HUMULIN N [Concomitant]
     Active Substance: INSULIN HUMAN
     Dosage: UNK, EACH EVENING
  9. XANAX                                   /USA/ [Concomitant]
  10. METFORMIN [Concomitant]
     Active Substance: METFORMIN HYDROCHLORIDE
  11. WARFARIN [Concomitant]
     Active Substance: WARFARIN
     Indication: COAGULOPATHY

REACTIONS (3)
  - C-reactive protein increased [Not Recovered/Not Resolved]
  - Contusion [Unknown]
  - Blood glucose increased [Not Recovered/Not Resolved]
